FAERS Safety Report 18083845 (Version 1)
Quarter: 2020Q3

REPORT INFORMATION
  Report Type: Spontaneous
  Country: US (occurrence: US)
  Receive Date: 20200728
  Receipt Date: 20200728
  Transmission Date: 20201103
  Serious: Yes (Hospitalization)
  Sender: FDA-Public Use
  Company Number: US-ROCHE-2647697

PATIENT
  Age: 55 Year
  Sex: Female

DRUGS (1)
  1. ESBRIET [Suspect]
     Active Substance: PIRFENIDONE
     Indication: CHRONIC HEPATITIS C
     Dosage: ONGOING :YES
     Route: 048
     Dates: start: 20200417

REACTIONS (3)
  - Off label use [Unknown]
  - Intentional product use issue [Unknown]
  - Gastric infection [Recovered/Resolved]

NARRATIVE: CASE EVENT DATE: 20200701
